FAERS Safety Report 7257713-6 (Version None)
Quarter: 2011Q1

REPORT INFORMATION
  Report Type: 
  Country: None (occurrence: None)
  Receive Date: 20110129
  Receipt Date: 20100505
  Transmission Date: 20110831
  Serious: No
  Sender: FDA-Public Use
  Company Number: US-ABBOTT-10P-163-0642485-00

PATIENT
  Sex: Female
  Weight: 76.272 kg

DRUGS (3)
  1. HUMIRA [Suspect]
     Indication: PSORIASIS
     Dates: start: 20100101
  2. HUMIRA [Suspect]
     Indication: PSORIATIC ARTHROPATHY
  3. LOMOTIL [Concomitant]
     Indication: DIARRHOEA
     Dates: start: 20100101

REACTIONS (2)
  - THROAT IRRITATION [None]
  - DRY MOUTH [None]
